FAERS Safety Report 22377650 (Version 2)
Quarter: 2023Q2

REPORT INFORMATION
  Report Type: Spontaneous
  Country: GB (occurrence: GB)
  Receive Date: 20230529
  Receipt Date: 20230607
  Transmission Date: 20230722
  Serious: Yes (Other)
  Sender: FDA-Public Use
  Company Number: GB-MHRA-MED-202305211258465270-LMRVB

PATIENT

DRUGS (4)
  1. LAMISIL [Suspect]
     Active Substance: TERBINAFINE HYDROCHLORIDE
     Indication: Tinea pedis
     Dosage: UNK (ONE APPLICATION OF LAMISIL ONCE GEL)
     Route: 065
     Dates: start: 20230513, end: 20230514
  2. TOLNAFTATE [Suspect]
     Active Substance: TOLNAFTATE
     Indication: Tinea pedis
     Dosage: UNK (ONE APPLICATION OF LAMISIL ONCE GEL)
     Route: 065
     Dates: start: 20230513, end: 20230514
  3. ASPIRIN [Concomitant]
     Active Substance: ASPIRIN
     Indication: Headache
     Dosage: UNK
     Route: 065
     Dates: start: 20230430, end: 20230430
  4. COD LIVER OIL [Concomitant]
     Active Substance: COD LIVER OIL
     Indication: Vitamin supplementation
     Dosage: UNK
     Route: 065

REACTIONS (7)
  - Rash pruritic [Unknown]
  - Rash morbilliform [Not Recovered/Not Resolved]
  - Oedema mouth [Not Recovered/Not Resolved]
  - Oedema [Unknown]
  - Rash erythematous [Unknown]
  - Rash [Not Recovered/Not Resolved]
  - Swelling [Unknown]

NARRATIVE: CASE EVENT DATE: 20230514
